FAERS Safety Report 6434487-X (Version None)
Quarter: 2009Q4

REPORT INFORMATION
  Report Type: 
  Country: None (occurrence: None)
  Receive Date: 20091110
  Receipt Date: 20091029
  Transmission Date: 20100525
  Serious: Yes (Other)
  Sender: FDA-Public Use
  Company Number: ZA-PFIZER INC-2009290762

PATIENT
  Age: 52 Year
  Sex: Male

DRUGS (13)
  1. VFEND [Suspect]
     Indication: MULTIPLE MYELOMA
     Dosage: 300 MG, 2X/DAY
     Route: 048
  2. BACTRIM [Concomitant]
     Route: 065
  3. ZYVOXID [Concomitant]
     Route: 065
  4. MERONEM [Concomitant]
     Route: 065
  5. COLISTIN [Concomitant]
     Route: 065
  6. ZITHROMAX [Concomitant]
     Route: 065
  7. CANCIDAS [Concomitant]
     Route: 065
  8. DECASONE [Concomitant]
     Route: 065
  9. SOLU-CORTEF [Concomitant]
     Route: 065
  10. CICLOSPORIN [Concomitant]
     Route: 065
  11. PROGRAF [Concomitant]
     Route: 065
  12. NEUPOGEN [Concomitant]
     Route: 065
  13. MAXIPIME [Concomitant]
     Route: 065

REACTIONS (3)
  - BLINDNESS TRANSIENT [None]
  - BRAIN OEDEMA [None]
  - DEAFNESS TRANSITORY [None]
